FAERS Safety Report 9405447 (Version 2)
Quarter: 2013Q4

REPORT INFORMATION
  Report Type: Spontaneous
  Country: FR (occurrence: FR)
  Receive Date: 20130715
  Receipt Date: 20131219
  Transmission Date: 20140711
  Serious: Yes (Hospitalization)
  Sender: FDA-Public Use
  Company Number: 1786857

PATIENT
  Age: 61 Year
  Sex: Female

DRUGS (11)
  1. ONDANSETRON [Concomitant]
  2. AMOXICILLIN W/CLAVULANIC ACID [Concomitant]
  3. OXYCODONE [Concomitant]
  4. GEMCITABINE HYDROCHLORIDE [Suspect]
     Indication: PANCREATIC CARCINOMA
     Dosage: 2 G GRAM(S), UNKNOWN, INTRAVENOUS (NOT OTHERWISE SPECIFIED)
     Route: 042
  5. TRAMADOL [Suspect]
     Indication: PAIN
     Route: 048
     Dates: start: 20130510, end: 20130526
  6. SITAGLIPTIN [Suspect]
     Indication: TYPE 2 DIABETES MELLITUS
     Route: 048
     Dates: start: 20130518, end: 20130530
  7. PROPRANOLOL [Concomitant]
  8. ALVITYL [Concomitant]
  9. ALPRAZOLAM MYLAN [Concomitant]
  10. PARACETAMOL [Concomitant]
  11. PREDNISONE [Concomitant]

REACTIONS (9)
  - Toxic skin eruption [None]
  - Rash maculo-papular [None]
  - Drug eruption [None]
  - Pyrexia [None]
  - Cough [None]
  - Thrombocytopenia [None]
  - Respiratory tract infection viral [None]
  - Vomiting [None]
  - Rash [None]
